FAERS Safety Report 6611400-3 (Version None)
Quarter: 2010Q1

REPORT INFORMATION
  Report Type: 
  Country: None (occurrence: None)
  Receive Date: 20100222
  Receipt Date: 20100201
  Transmission Date: 20100710
  Serious: Yes (Hospitalization)
  Sender: FDA-Public Use
  Company Number: 1000011625

PATIENT
  Sex: Male

DRUGS (6)
  1. CARBAMAZEPINE [Suspect]
     Dosage: 200 MG (200 MG, 1 IN 1 D), SEVERAL TABLETS (ONCE)
  2. DISULFIRAM [Suspect]
     Indication: ALCOHOL DETOXIFICATION
     Dosage: 400 MG (400 MG, 1 IN 1 D), (50 DOSAGE FORMS, ONCE)
     Dates: start: 20000101
  3. CLONAZEPAM [Concomitant]
  4. OLANZAPINE VELOTABS [Concomitant]
  5. RISPERIDONE [Concomitant]
  6. VITAMIN B COMPLEX CAP [Concomitant]

REACTIONS (20)
  - AGITATION [None]
  - AMMONIA INCREASED [None]
  - ATAXIA [None]
  - BLOOD ETHANOL INCREASED [None]
  - COMA [None]
  - COORDINATION ABNORMAL [None]
  - DIPLOPIA [None]
  - DYSARTHRIA [None]
  - DYSPNOEA [None]
  - EPILEPSY [None]
  - HYPONATRAEMIA [None]
  - HYPOTHERMIA [None]
  - METABOLIC ENCEPHALOPATHY [None]
  - MULTIPLE DRUG OVERDOSE [None]
  - MYOCLONUS [None]
  - PNEUMONIA ASPIRATION [None]
  - QUADRIPARESIS [None]
  - SOMNOLENCE [None]
  - SUICIDE ATTEMPT [None]
  - VISION BLURRED [None]
